FAERS Safety Report 11995417 (Version 3)
Quarter: 2016Q1

REPORT INFORMATION
  Report Type: Spontaneous
  Country: JP (occurrence: JP)
  Receive Date: 20160203
  Receipt Date: 20160225
  Transmission Date: 20160526
  Serious: Yes (Hospitalization, Other)
  Sender: FDA-Public Use
  Company Number: JP-GLAXOSMITHKLINE-JP2016JPN011146

PATIENT
  Age: 85 Year
  Sex: Male
  Weight: 51 kg

DRUGS (19)
  1. IMURAN [Suspect]
     Active Substance: AZATHIOPRINE
     Indication: DERMATOMYOSITIS
     Dosage: 50 MG, QD
     Route: 048
     Dates: end: 20160127
  2. TACROLIMUS. [Suspect]
     Active Substance: TACROLIMUS
     Indication: SCLERODERMA
     Dosage: 1 MG, QD
     Route: 048
     Dates: start: 20160201
  3. TACROLIMUS. [Suspect]
     Active Substance: TACROLIMUS
     Indication: PULMONARY TUBERCULOSIS
  4. PYRIDOXAL CALCIUM PHOSPHATE [Concomitant]
     Indication: SCLERODERMA
     Dosage: UNK
     Dates: start: 20160201
  5. IMURAN [Suspect]
     Active Substance: AZATHIOPRINE
     Indication: INTERSTITIAL LUNG DISEASE
  6. VICCLOX [Suspect]
     Active Substance: ACYCLOVIR SODIUM
     Indication: HERPES ZOSTER
     Dosage: 250 MG, TID
     Route: 041
     Dates: start: 20160126, end: 20160201
  7. ISCOTIN (JAPAN) [Concomitant]
     Indication: SCLERODERMA
     Dosage: UNK
     Dates: start: 20160201
  8. PYRIDOXAL CALCIUM PHOSPHATE [Concomitant]
     Indication: DERMATOMYOSITIS
     Dosage: UNK
     Dates: end: 20160127
  9. IMURAN [Suspect]
     Active Substance: AZATHIOPRINE
     Indication: SCLERODERMA
     Dosage: 50 MG, QD
     Dates: start: 20160201
  10. ISCOTIN (JAPAN) [Concomitant]
     Indication: INTERSTITIAL LUNG DISEASE
  11. PREDNISOLONE. [Concomitant]
     Active Substance: PREDNISOLONE
     Indication: HERPES ZOSTER
     Dosage: 10 MG, 1D
     Dates: start: 20160127, end: 20160201
  12. TACROLIMUS. [Suspect]
     Active Substance: TACROLIMUS
     Indication: DERMATOMYOSITIS
     Dosage: 1 MG, QD
     Route: 048
     Dates: end: 20160127
  13. ISCOTIN (JAPAN) [Concomitant]
     Indication: DERMATOMYOSITIS
     Dosage: UNK MG, UNK
     Dates: end: 20160127
  14. ISCOTIN (JAPAN) [Concomitant]
     Indication: PULMONARY TUBERCULOSIS
  15. VALTREX [Suspect]
     Active Substance: VALACYCLOVIR HYDROCHLORIDE
     Indication: HERPES ZOSTER
     Dosage: 1000 MG, TID
     Route: 048
     Dates: start: 20160124, end: 20160126
  16. TACROLIMUS. [Suspect]
     Active Substance: TACROLIMUS
     Indication: INTERSTITIAL LUNG DISEASE
  17. PYRIDOXAL CALCIUM PHOSPHATE [Concomitant]
     Indication: INTERSTITIAL LUNG DISEASE
  18. PYRIDOXAL CALCIUM PHOSPHATE [Concomitant]
     Indication: PULMONARY TUBERCULOSIS
  19. IMURAN [Suspect]
     Active Substance: AZATHIOPRINE
     Indication: PULMONARY TUBERCULOSIS

REACTIONS (1)
  - Pancytopenia [Recovered/Resolved]

NARRATIVE: CASE EVENT DATE: 20160126
